FAERS Safety Report 8196526-8 (Version None)
Quarter: 2012Q1

REPORT INFORMATION
  Report Type: 
  Country: None (occurrence: None)
  Receive Date: 20120309
  Receipt Date: 20120228
  Transmission Date: 20120608
  Serious: Yes (Other)
  Sender: FDA-Public Use
  Company Number: US-JNJFOC-20120214557

PATIENT
  Sex: Male
  Weight: 67.13 kg

DRUGS (2)
  1. REMICADE [Suspect]
     Indication: COLITIS ULCERATIVE
     Route: 042
     Dates: start: 20120201
  2. ASACOL [Concomitant]
     Indication: COLITIS ULCERATIVE
     Route: 048
     Dates: start: 20110801

REACTIONS (7)
  - OROPHARYNGEAL PAIN [None]
  - TREMOR [None]
  - INFLUENZA LIKE ILLNESS [None]
  - HYPOTENSION [None]
  - DYSPHONIA [None]
  - SINUSITIS [None]
  - LOSS OF CONSCIOUSNESS [None]
